FAERS Safety Report 10753367 (Version 1)
Quarter: 2015Q1

REPORT INFORMATION
  Report Type: Spontaneous
  Country: US (occurrence: None)
  Receive Date: 20150129
  Receipt Date: 20150129
  Transmission Date: 20150721
  Serious: No
  Sender: FDA-Public Use
  Company Number: None

PATIENT
  Age: 51 Year
  Sex: Female
  Weight: 55.34 kg

DRUGS (1)
  1. BRISDELLE [Suspect]
     Active Substance: PAROXETINE MESYLATE
     Indication: MENOPAUSAL SYMPTOMS
     Dosage: 1 TABLET, ONCE DAILY, TAKEN BY MOUTH
     Route: 048
     Dates: start: 20141125, end: 20141201

REACTIONS (5)
  - Contusion [None]
  - Internal haemorrhage [None]
  - Haemorrhage [None]
  - Glossodynia [None]
  - Tongue discolouration [None]

NARRATIVE: CASE EVENT DATE: 20141130
